FAERS Safety Report 21897458 (Version 2)
Quarter: 2023Q2

REPORT INFORMATION
  Report Type: Spontaneous
  Country: US (occurrence: US)
  Receive Date: 20230123
  Receipt Date: 20230410
  Transmission Date: 20230722
  Serious: Yes (Other)
  Sender: FDA-Public Use
  Company Number: US-BAYER-2023P004036

PATIENT
  Age: 3 Year
  Sex: Male

DRUGS (1)
  1. KOVALTRY [Suspect]
     Active Substance: ANTIHEMOPHILIC FACTOR, HUMAN RECOMBINANT
     Indication: Factor VIII deficiency
     Dosage: 750 U, BIW  (EVERY MONDAY AND THURSDAY)
     Route: 042
     Dates: start: 202212

REACTIONS (1)
  - Haemarthrosis [Not Recovered/Not Resolved]
